FAERS Safety Report 12106145 (Version 2)
Quarter: 2016Q1

REPORT INFORMATION
  Report Type: Spontaneous
  Country: EG (occurrence: EG)
  Receive Date: 20160223
  Receipt Date: 20160310
  Transmission Date: 20160526
  Serious: Yes (Other)
  Sender: FDA-Public Use
  Company Number: EG-ELI_LILLY_AND_COMPANY-EG201602006598

PATIENT
  Age: 13 Year
  Sex: Male

DRUGS (2)
  1. FAVERIN [Concomitant]
     Active Substance: FLUVOXAMINE MALEATE
     Indication: ANXIETY
     Dosage: 100 MG, QD
     Route: 048
     Dates: start: 201510
  2. STRATTERA [Suspect]
     Active Substance: ATOMOXETINE HYDROCHLORIDE
     Indication: ATTENTION DEFICIT/HYPERACTIVITY DISORDER
     Dosage: 60 MG, QD
     Route: 048
     Dates: start: 201510

REACTIONS (4)
  - Capillary fragility [Unknown]
  - Drop attacks [Unknown]
  - Ocular hyperaemia [Unknown]
  - Blood pressure increased [Unknown]
